FAERS Safety Report 5573521-6 (Version None)
Quarter: 2007Q4

REPORT INFORMATION
  Report Type: 
  Country: None (occurrence: None)
  Receive Date: 20071220
  Receipt Date: 20071220
  Transmission Date: 20080405
  Serious: Yes (Disabling)
  Sender: FDA-Public Use
  Company Number: None

PATIENT
  Age: 65 Year
  Sex: Female
  Weight: 87 kg

DRUGS (1)
  1. ANGIOMAX [Suspect]
     Indication: PERCUTANEOUS CORONARY INTERVENTION
     Dosage: 65MG  ONCE  IV BOLUS;  152MG/HR  DRIP  IV DRIP
     Route: 040
     Dates: start: 20071218, end: 20071218

REACTIONS (1)
  - COAGULATION TIME PROLONGED [None]
